FAERS Safety Report 14452731 (Version 1)
Quarter: 2018Q1

REPORT INFORMATION
  Report Type: Other
  Country: US (occurrence: US)
  Receive Date: 20180129
  Receipt Date: 20180129
  Transmission Date: 20180509
  Serious: Yes (Hospitalization, Other)
  Sender: FDA-Public Use
  Company Number: US-ACTELION-A-CH2018-166116

PATIENT
  Age: 14 Month
  Sex: Male

DRUGS (3)
  1. NITRIC OXIDE. [Concomitant]
     Active Substance: NITRIC OXIDE
     Route: 055
  2. BOSENTAN. [Suspect]
     Active Substance: BOSENTAN
     Indication: PULMONARY HYPERTENSION
     Route: 048
  3. TREPROSTINIL [Concomitant]
     Active Substance: TREPROSTINIL
     Dosage: 80 NG/KG, PER MIN
     Route: 042

REACTIONS (3)
  - Concomitant disease progression [Unknown]
  - Right ventricular failure [Unknown]
  - Extracorporeal membrane oxygenation [Unknown]
